FAERS Safety Report 6874614-3 (Version None)
Quarter: 2010Q3

REPORT INFORMATION
  Report Type: 
  Country: None (occurrence: None)
  Receive Date: 20100722
  Receipt Date: 20100708
  Transmission Date: 20110219
  Serious: Yes (Death, Hospitalization)
  Sender: FDA-Public Use
  Company Number: 641854

PATIENT
  Age: 73 Year
  Sex: Female

DRUGS (2)
  1. CYTARABINE [Suspect]
     Indication: LEUKAEMIA
     Dosage: 100 MG/M2 MILLIGRAM(S), SQ. METER (2 DAY)
     Dates: start: 20100308, end: 20100426
  2. DAUNORUBICIN HCL [Suspect]
     Indication: LEUKAEMIA
     Dosage: 50 UG/ M 2 MICROGRAM(S) / SQ. METER INTRAVENOUS
     Route: 042
     Dates: start: 20100308, end: 20100426

REACTIONS (2)
  - BACTERIAL SEPSIS [None]
  - NEUTROPENIC SEPSIS [None]
